FAERS Safety Report 23147201 (Version 1)
Quarter: 2023Q4

REPORT INFORMATION
  Report Type: Spontaneous
  Country: US (occurrence: US)
  Receive Date: 20231106
  Receipt Date: 20231106
  Transmission Date: 20240110
  Serious: Yes (Other)
  Sender: FDA-Public Use
  Company Number: US-drreddys-SPO/USA/23/0182172

PATIENT
  Age: 73 Year
  Sex: Male

DRUGS (1)
  1. CLOZAPINE [Suspect]
     Active Substance: CLOZAPINE
     Indication: Product used for unknown indication

REACTIONS (8)
  - Platelet count decreased [Unknown]
  - Mean cell haemoglobin concentration decreased [Recovering/Resolving]
  - Red cell distribution width increased [Not Recovered/Not Resolved]
  - Monocyte percentage decreased [Unknown]
  - Immature granulocyte percentage increased [Unknown]
  - Monocyte count decreased [Unknown]
  - Haemoglobin decreased [Unknown]
  - Red blood cell count decreased [Not Recovered/Not Resolved]

NARRATIVE: CASE EVENT DATE: 20230925
